FAERS Safety Report 6891858-5 (Version None)
Quarter: 2010Q3

REPORT INFORMATION
  Report Type: 
  Country: None (occurrence: None)
  Receive Date: 20100731
  Receipt Date: 20071114
  Transmission Date: 20110219
  Serious: No
  Sender: FDA-Public Use
  Company Number: US-PFIZER INC-2007096274

PATIENT
  Age: 67 Year
  Sex: Male
  Weight: 42.64 kg

DRUGS (4)
  1. CAMPTOSAR [Suspect]
     Indication: OESOPHAGEAL CANCER METASTATIC
     Dates: start: 20070101
  2. CISPLATIN [Concomitant]
  3. OXYCODONE HCL [Concomitant]
  4. OMEPRAZOLE [Concomitant]

REACTIONS (1)
  - DIARRHOEA [None]
